FAERS Safety Report 12104470 (Version 3)
Quarter: 2016Q1

REPORT INFORMATION
  Report Type: Spontaneous
  Country: FR (occurrence: FR)
  Receive Date: 20160223
  Receipt Date: 20160316
  Transmission Date: 20160526
  Serious: Yes (Hospitalization, Other)
  Sender: FDA-Public Use
  Company Number: FR-PFIZER INC-2016096498

PATIENT
  Age: 41 Year
  Sex: Male

DRUGS (4)
  1. LYRICA [Suspect]
     Active Substance: PREGABALIN
     Dosage: 75 MG, 6X/DAY
     Route: 048
  2. SERESTA [Suspect]
     Active Substance: OXAZEPAM
     Dosage: 50 MG, 3X/DAY
     Route: 048
  3. NOCTAMIDE [Suspect]
     Active Substance: LORMETAZEPAM
     Dosage: 1 DF, 1X/DAY
     Route: 048
     Dates: end: 20151120
  4. SELINCRO [Suspect]
     Active Substance: NALMEFENE HYDROCHLORIDE DIHYDRATE
     Dosage: 1 DF, 1X/DAY
     Route: 048
     Dates: end: 20151120

REACTIONS (10)
  - Chemical poisoning [Unknown]
  - Blood alcohol increased [Unknown]
  - Confusional state [Recovered/Resolved]
  - Agitation [Unknown]
  - Amnesia [Recovering/Resolving]
  - Drug screen positive [Unknown]
  - C-reactive protein increased [Unknown]
  - Tachycardia [Unknown]
  - Acute kidney injury [Unknown]
  - Miosis [Unknown]

NARRATIVE: CASE EVENT DATE: 20151120
